FAERS Safety Report 5820145-9 (Version None)
Quarter: 2008Q3

REPORT INFORMATION
  Report Type: 
  Country: None (occurrence: None)
  Receive Date: 20080724
  Receipt Date: 20080711
  Transmission Date: 20090109
  Serious: Yes (Hospitalization)
  Sender: FDA-Public Use
  Company Number: PHBS2008GB05139

PATIENT
  Age: 68 Year
  Sex: Male

DRUGS (1)
  1. IMATINIB MESYLATE [Suspect]
     Indication: CHRONIC MYELOID LEUKAEMIA
     Dosage: 400 MG, DAY
     Dates: start: 20050801, end: 20070401

REACTIONS (6)
  - ACUTE LYMPHOCYTIC LEUKAEMIA [None]
  - BALANCE DISORDER [None]
  - HEADACHE [None]
  - MUSCLE SPASMS [None]
  - TREMOR [None]
  - WHITE BLOOD CELL COUNT [None]
